FAERS Safety Report 7883529-3 (Version None)
Quarter: 2011Q4

REPORT INFORMATION
  Report Type: 
  Country: None (occurrence: None)
  Receive Date: 20111102
  Receipt Date: 20111026
  Transmission Date: 20120403
  Serious: Yes (Hospitalization)
  Sender: FDA-Public Use
  Company Number: NL-B.I. PHARMACEUTICALS,INC./RIDGEFIELD-2011-NL-00315NL

PATIENT
  Sex: Female
  Weight: 70 kg

DRUGS (2)
  1. OTHER MEDICATIONS NOT KNOW BY REPORTER [Concomitant]
  2. PRADAXA [Suspect]
     Indication: ATRIAL FIBRILLATION
     Dates: start: 20100101, end: 20100101

REACTIONS (4)
  - TRANSIENT ISCHAEMIC ATTACK [None]
  - GASTROINTESTINAL HAEMORRHAGE [None]
  - HAEMORRHAGE INTRACRANIAL [None]
  - ABDOMINAL DISCOMFORT [None]
